APPROVED DRUG PRODUCT: CEFDINIR
Active Ingredient: CEFDINIR
Strength: 250MG/5ML
Dosage Form/Route: FOR SUSPENSION;ORAL
Application: A065332 | Product #002 | TE Code: AB
Applicant: TEVA PHARMACEUTICALS USA
Approved: May 4, 2007 | RLD: No | RS: No | Type: RX